FAERS Safety Report 4829906-6 (Version None)
Quarter: 2005Q4

REPORT INFORMATION
  Report Type: 
  Country: None (occurrence: None)
  Receive Date: 20051115
  Receipt Date: 20051115
  Transmission Date: 20060501
  Serious: Yes (Hospitalization)
  Sender: FDA-Public Use
  Company Number: None

PATIENT
  Sex: Male
  Weight: 88.2246 kg

DRUGS (7)
  1. VERAPAMIL [Suspect]
     Dosage: 240MG,  120MG  ONCE DAILY  PO
     Route: 048
  2. TERAZOSIN [Concomitant]
  3. RANITIDINE [Concomitant]
  4. LISINOPRIL [Concomitant]
  5. HYDROCHLOROTHIAZIDE [Concomitant]
  6. ASPIRIN [Concomitant]
  7. TOLAZAMIDE [Concomitant]

REACTIONS (2)
  - ATRIOVENTRICULAR BLOCK SECOND DEGREE [None]
  - SYNCOPE [None]
